FAERS Safety Report 6945254-2 (Version None)
Quarter: 2010Q3

REPORT INFORMATION
  Report Type: 
  Country: None (occurrence: None)
  Receive Date: 20100827
  Receipt Date: 20100721
  Transmission Date: 20110219
  Serious: No
  Sender: FDA-Public Use
  Company Number: US-KINGPHARMUSA00001-K201000921

PATIENT
  Age: 45 Year
  Sex: Female
  Weight: 63.492 kg

DRUGS (6)
  1. FLECTOR [Suspect]
     Indication: BACK PAIN
     Dosage: 1 PATCH, QD FOR 12H
     Route: 061
     Dates: start: 20090212, end: 20090401
  2. FLECTOR [Suspect]
     Dosage: 1 PATCH, PREN, QD FEW TIMES/WK
     Route: 061
     Dates: start: 20090401, end: 20100201
  3. TENORETIC 100 [Concomitant]
     Indication: BLOOD PRESSURE INCREASED
     Dosage: UNK
     Route: 048
  4. POTASSIUM [Concomitant]
     Dosage: UNK
     Route: 048
  5. XANAX [Concomitant]
     Indication: ANXIETY
     Dosage: UNK
     Route: 048
  6. ALTACE [Concomitant]
     Indication: BLOOD PRESSURE INCREASED
     Dosage: 5 MG, QD
     Route: 048

REACTIONS (5)
  - APPLICATION SITE EXFOLIATION [None]
  - APPLICATION SITE PRURITUS [None]
  - APPLICATION SITE RASH [None]
  - CHEST PAIN [None]
  - PAIN IN EXTREMITY [None]
